FAERS Safety Report 7388039-8 (Version None)
Quarter: 2011Q2

REPORT INFORMATION
  Report Type: 
  Country: None (occurrence: None)
  Receive Date: 20110401
  Receipt Date: 20110329
  Transmission Date: 20111010
  Serious: No
  Sender: FDA-Public Use
  Company Number: US-PFIZER INC-2011070877

PATIENT
  Sex: Female
  Weight: 73.469 kg

DRUGS (5)
  1. LYRICA [Suspect]
     Dosage: 25 MG, 2X/DAY
     Route: 048
     Dates: start: 20110327
  2. GABAPENTIN [Suspect]
     Dosage: 900 MG DAILY
     Route: 048
  3. DIGOXIN [Concomitant]
     Indication: ARRHYTHMIA
     Dosage: 0.125 MG, 1X/DAY
  4. LYRICA [Suspect]
     Indication: HERPES ZOSTER
     Dosage: 25 MG, 1X/DAY
     Route: 048
     Dates: start: 20110324, end: 20110326
  5. GABAPENTIN [Suspect]
     Indication: HERPES ZOSTER
     Dosage: 1200 MG DAILY
     Route: 048

REACTIONS (3)
  - DRUG INEFFECTIVE [None]
  - DRY MOUTH [None]
  - DRUG EFFECT DECREASED [None]
